FAERS Safety Report 8421827-5 (Version None)
Quarter: 2012Q2

REPORT INFORMATION
  Report Type: 
  Country: None (occurrence: None)
  Receive Date: 20120601
  Receipt Date: 20120518
  Transmission Date: 20120825
  Serious: Yes (Other)
  Sender: FDA-Public Use
  Company Number: 2012MA003564

PATIENT
  Age: 48 Year
  Sex: Female
  Weight: 70 kg

DRUGS (11)
  1. PACLITAXEL [Suspect]
     Indication: BREAST CANCER
     Dosage: 315 MG;IV
     Route: 042
     Dates: end: 20110705
  2. DOXORUBICIN HCL [Concomitant]
  3. DEXAMETHASONE [Suspect]
     Dosage: 20 MG;IV
     Route: 042
  4. PEGFILGRASTIM (PEGFILGRASTIM) [Suspect]
     Dosage: 5 MG;SQ
  5. GRANISETRON [Suspect]
     Dosage: 1 MG;BID;PO
     Route: 048
  6. DOCUSATE SODIUM [Concomitant]
  7. CHLORPHENIRAMINE TAB [Suspect]
     Dosage: 10 MG; IV
     Route: 042
  8. BIOTINE [Concomitant]
  9. RANITIDINE [Suspect]
     Dosage: 50 MG;IV
     Route: 042
  10. DOMPERIDONE (DOMPERIDONE) [Suspect]
     Dosage: 20 MG;TID;PO
     Route: 048
  11. CYCLOPHOSPHAMIDE [Concomitant]

REACTIONS (5)
  - DYSPNOEA [None]
  - CHEST PAIN [None]
  - THROAT TIGHTNESS [None]
  - FATIGUE [None]
  - CHEST DISCOMFORT [None]
